FAERS Safety Report 13815195 (Version 1)
Quarter: 2017Q3

REPORT INFORMATION
  Report Type: Spontaneous
  Country: US (occurrence: US)
  Receive Date: 20170731
  Receipt Date: 20170731
  Transmission Date: 20171127
  Serious: No
  Sender: FDA-Public Use
  Company Number: US-BAUSCH-BL-2016-024460

PATIENT
  Age: 58 Year
  Sex: Female

DRUGS (1)
  1. EYE ALLERGY RELIEF [Suspect]
     Active Substance: NAPHAZOLINE HYDROCHLORIDE\PHENIRAMINE MALEATE
     Indication: DRY EYE
     Route: 065
     Dates: start: 20160929, end: 20160929

REACTIONS (4)
  - Eye inflammation [Unknown]
  - Ocular hyperaemia [Unknown]
  - Eye irritation [Unknown]
  - Eye pruritus [Unknown]

NARRATIVE: CASE EVENT DATE: 20160929
